FAERS Safety Report 19346487 (Version 2)
Quarter: 2021Q2

REPORT INFORMATION
  Report Type: Report from Study
  Country: KR (occurrence: KR)
  Receive Date: 20210531
  Receipt Date: 20210605
  Transmission Date: 20210717
  Serious: Yes (Hospitalization, Other)
  Sender: FDA-Public Use
  Company Number: KR-AMGEN-KORCT2021082503

PATIENT
  Age: 48 Year
  Sex: Female

DRUGS (28)
  1. FILGRASTIM [Suspect]
     Active Substance: FILGRASTIM
     Dosage: 150 UNK
     Route: 065
     Dates: start: 20180719, end: 20180719
  2. LENOGRASTIM [Concomitant]
     Active Substance: LENOGRASTIM
     Dosage: 250 UNK, QD
     Dates: start: 20180617, end: 20180617
  3. FILGRASTIM [Suspect]
     Active Substance: FILGRASTIM
     Dosage: 150 UNK
     Route: 065
     Dates: start: 20180709, end: 20180709
  4. DARATUMUMAB [Concomitant]
     Active Substance: DARATUMUMAB
     Indication: PRODUCT USED FOR UNKNOWN INDICATION
     Dosage: 1132.8 MILLIGRAM, QD
     Dates: start: 20180601, end: 20180601
  5. DARATUMUMAB [Concomitant]
     Active Substance: DARATUMUMAB
     Dosage: 1132.8 MILLIGRAM, QD
     Dates: start: 20180608, end: 20180608
  6. DARATUMUMAB [Concomitant]
     Active Substance: DARATUMUMAB
     Dosage: 1132.8 MILLIGRAM, QD
     Dates: start: 20180622, end: 20180622
  7. DARATUMUMAB [Concomitant]
     Active Substance: DARATUMUMAB
     Dosage: 1132.8 MILLIGRAM, QD
     Dates: start: 20180712, end: 20180712
  8. PARACETAMOL [Concomitant]
     Active Substance: ACETAMINOPHEN
     Indication: PRODUCT USED FOR UNKNOWN INDICATION
     Dosage: 1300 MILLIGRAM
     Dates: start: 20180601, end: 20180601
  9. TRAMADOL. [Concomitant]
     Active Substance: TRAMADOL
     Indication: PRODUCT USED FOR UNKNOWN INDICATION
     Dosage: 100 MILLIGRAM
     Dates: start: 20180726, end: 20180726
  10. FILGRASTIM [Suspect]
     Active Substance: FILGRASTIM
     Dosage: 150 UNK
     Route: 065
     Dates: start: 20180705, end: 20180705
  11. DARATUMUMAB [Concomitant]
     Active Substance: DARATUMUMAB
     Dosage: 1132.8 MILLIGRAM, QD
     Dates: start: 20180719, end: 20180719
  12. FUROSEMIDE. [Concomitant]
     Active Substance: FUROSEMIDE
     Indication: PRODUCT USED FOR UNKNOWN INDICATION
     Dosage: 50 MILLIGRAM, QD
     Dates: start: 20180601, end: 20180601
  13. HYDROMORPHONE [Concomitant]
     Active Substance: HYDROMORPHONE
     Indication: PRODUCT USED FOR UNKNOWN INDICATION
     Dosage: 2 MILLIGRAM
     Dates: start: 20180726, end: 20180726
  14. DARATUMUMAB [Concomitant]
     Active Substance: DARATUMUMAB
     Dosage: 1132.8 MILLIGRAM, QD
     Dates: start: 20180628, end: 20180628
  15. DARATUMUMAB [Concomitant]
     Active Substance: DARATUMUMAB
     Dosage: 1132.8 MILLIGRAM, QD
     Dates: start: 20180705, end: 20180705
  16. LEVOFLOXACIN. [Concomitant]
     Active Substance: LEVOFLOXACIN
     Indication: PRODUCT USED FOR UNKNOWN INDICATION
     Dosage: 50 MILLIGRAM, QD
     Dates: start: 20180723
  17. FILGRASTIM [Suspect]
     Active Substance: FILGRASTIM
     Indication: PRODUCT USED FOR UNKNOWN INDICATION
     Dosage: 150 UNK
     Route: 065
     Dates: start: 20180625, end: 20180625
  18. FILGRASTIM [Suspect]
     Active Substance: FILGRASTIM
     Dosage: 150 UNK
     Route: 065
     Dates: start: 20180726, end: 20180726
  19. DARATUMUMAB [Concomitant]
     Active Substance: DARATUMUMAB
     Dosage: 1132.8 MILLIGRAM, QD
     Dates: start: 20180615, end: 20180615
  20. FLUBENDAZOLE [Concomitant]
     Active Substance: FLUBENDAZOLE
     Indication: PRODUCT USED FOR UNKNOWN INDICATION
     Dosage: 5 MILLIGRAM, QD
     Dates: start: 20180506, end: 20180725
  21. FLUCONAZOLE. [Concomitant]
     Active Substance: FLUCONAZOLE
     Indication: PRODUCT USED FOR UNKNOWN INDICATION
     Dosage: 400 MILLIGRAM, QD
     Dates: start: 20180515, end: 20180614
  22. LEVOFLOXACIN. [Concomitant]
     Active Substance: LEVOFLOXACIN
     Dosage: 500 MILLIGRAM, QD
     Dates: start: 20180531, end: 20180622
  23. PREGABALIN. [Concomitant]
     Active Substance: PREGABALIN
     Indication: PRODUCT USED FOR UNKNOWN INDICATION
     Dosage: 75 MILLIGRAM, QD
     Dates: start: 20180502, end: 20180725
  24. PREGABALIN. [Concomitant]
     Active Substance: PREGABALIN
     Dosage: 150 MILLIGRAM, QD
     Dates: start: 20180726
  25. RABEPRAZOLE [Concomitant]
     Active Substance: RABEPRAZOLE
     Indication: PRODUCT USED FOR UNKNOWN INDICATION
     Dosage: 10 MILLIGRAM, QD
     Dates: start: 20180430
  26. ALPRAZOLAM. [Concomitant]
     Active Substance: ALPRAZOLAM
     Indication: PRODUCT USED FOR UNKNOWN INDICATION
     Dosage: 0.5 MILLIGRAM, QD
     Dates: start: 20180719
  27. LENOGRASTIM [Concomitant]
     Active Substance: LENOGRASTIM
     Indication: PRODUCT USED FOR UNKNOWN INDICATION
     Dosage: 150 UNK
     Dates: start: 20180601, end: 20180620
  28. TAPENTADOL [Concomitant]
     Active Substance: TAPENTADOL
     Indication: PRODUCT USED FOR UNKNOWN INDICATION
     Dosage: 100 MILLIGRAM, QD
     Dates: start: 20180726, end: 20180803

REACTIONS (2)
  - Neutropenia [Unknown]
  - Herpes zoster [Recovered/Resolved]

NARRATIVE: CASE EVENT DATE: 20180625
